FAERS Safety Report 4996794-7 (Version None)
Quarter: 2006Q2

REPORT INFORMATION
  Report Type: 
  Country: None (occurrence: None)
  Receive Date: 20060509
  Receipt Date: 20060428
  Transmission Date: 20061013
  Serious: Yes (Other)
  Sender: FDA-Public Use
  Company Number: US-JNJFOC-20060500505

PATIENT
  Sex: Female
  Weight: 68.04 kg

DRUGS (8)
  1. TOPAMAX [Suspect]
     Indication: MIGRAINE
     Route: 048
  2. LEXAPRO [Concomitant]
  3. ALBUTEROL SULFATE AUTOHALER [Concomitant]
  4. ADVAIR DISKUS 100/50 [Concomitant]
  5. ADVAIR DISKUS 100/50 [Concomitant]
  6. FIORECET [Concomitant]
  7. FIORECET [Concomitant]
  8. FIORECET [Concomitant]

REACTIONS (3)
  - BLINDNESS [None]
  - EYE HAEMORRHAGE [None]
  - OCULAR VASCULAR DISORDER [None]
